FAERS Safety Report 4870137-1 (Version None)
Quarter: 2005Q4

REPORT INFORMATION
  Report Type: 
  Country: None (occurrence: None)
  Receive Date: 20051227
  Receipt Date: 20051214
  Transmission Date: 20060501
  Serious: Yes (Hospitalization)
  Sender: FDA-Public Use
  Company Number: 2005-135967-NL

PATIENT
  Age: 57 Year
  Sex: Female

DRUGS (5)
  1. MIRTAZAPINE [Suspect]
     Indication: DEPRESSION
     Dosage: 45 MG/1125 MG ORAL
     Route: 048
     Dates: end: 20050901
  2. MIRTAZAPINE [Suspect]
     Indication: SUICIDE ATTEMPT
     Dosage: 45 MG/1125 MG ORAL
     Route: 048
     Dates: end: 20050901
  3. PAROXETINE HCL [Suspect]
     Dosage: 20 MG
  4. METOPROLOL TARTRATE [Concomitant]
  5. DOXEPIN HCL [Concomitant]

REACTIONS (6)
  - DRUG INTERACTION [None]
  - HYPERTENSIVE CRISIS [None]
  - NAUSEA [None]
  - SOMNOLENCE [None]
  - SUICIDE ATTEMPT [None]
  - TACHYCARDIA [None]
